FAERS Safety Report 6905818-9 (Version None)
Quarter: 2010Q3

REPORT INFORMATION
  Report Type: 
  Country: None (occurrence: None)
  Receive Date: 20100804
  Receipt Date: 20100730
  Transmission Date: 20110219
  Serious: Yes (Hospitalization)
  Sender: FDA-Public Use
  Company Number: US-ROCHE-699983

PATIENT
  Sex: Female
  Weight: 89.1 kg

DRUGS (16)
  1. BEVACIZUMAB [Suspect]
     Dosage: DOSE LEVEL:15MG/KG, FORM:VIALS, DATE OF LAST DOSE PRIOR TO SAE:08APRIL2010, PERMANENTLY DISCONTINUED
     Route: 042
     Dates: start: 20091203, end: 20100426
  2. TRASTUZUMAB [Suspect]
     Dosage: FORM:VIALS, DATE OF LAST DOSE PRIOR TO SAE:08 APRIL 2010, LOADING DOSE AT 8 MG/KG
     Route: 042
     Dates: start: 20091203
  3. TRASTUZUMAB [Suspect]
     Dosage: MAINTENANCE DOSE: 6MG/KG
     Route: 042
     Dates: start: 20091224
  4. CARBOPLATIN [Suspect]
     Dosage: DOSE LEVEL:6AUC, FORM:VIALS, DATE OF LAST DOSE PRIOR TO SAE:18 MARCH 2010
     Route: 042
     Dates: start: 20091203
  5. DOCETAXEL [Suspect]
     Dosage: DOSE LEVEL:75MG/M2, FORM:VIALS, DATE OF LAST DOSE PRIOR TO SAE:18 MARCH 2010
     Route: 042
     Dates: start: 20091203
  6. COUMADIN [Concomitant]
     Dosage: DOSE: VARIABLE, UNIT: MG
     Dates: start: 20100330, end: 20100423
  7. MULTI-VITAMIN [Concomitant]
     Dosage: TOTAL DAILY DOSE: 1 TAB/DAY
     Dates: start: 20090101
  8. DIPHENHYDRAMINE [Concomitant]
     Dates: start: 20090101
  9. RANITIDINE [Concomitant]
     Dates: start: 20090101
  10. CALCIUM CARBONATE [Concomitant]
     Dosage: TOTAL DAILY DOSE: 2 TABS/DAY
     Dates: start: 20090101
  11. METOPROLOL [Concomitant]
     Dates: start: 20090101
  12. LISINOPRIL [Concomitant]
     Dates: start: 20100201
  13. AMBIEN CR [Concomitant]
     Dates: start: 20100202
  14. ATIVAN [Concomitant]
     Dates: start: 20100202
  15. PAXIL [Concomitant]
     Dates: start: 20100204
  16. MEGACE [Concomitant]
     Dosage: DRUG NAME: MEGACE SUSP. TOTAL DAILY DOSE: 5 CC/DAY
     Dates: start: 20100202

REACTIONS (6)
  - DIZZINESS [None]
  - FAECES DISCOLOURED [None]
  - GASTRIC HAEMORRHAGE [None]
  - GASTRIC ULCER [None]
  - MALLORY-WEISS SYNDROME [None]
  - THROMBOPHLEBITIS SUPERFICIAL [None]
